FAERS Safety Report 12250533 (Version 1)
Quarter: 2016Q2

REPORT INFORMATION
  Report Type: Spontaneous
  Country: US (occurrence: US)
  Receive Date: 20160408
  Receipt Date: 20160408
  Transmission Date: 20160815
  Serious: No
  Sender: FDA-Public Use
  Company Number: US-PRINSTON PHARMACEUTICAL INC.-2016PRN00024

PATIENT
  Sex: Female

DRUGS (3)
  1. ZONEGRAN [Suspect]
     Active Substance: ZONISAMIDE
     Dosage: 100 MG, 1X/DAY
  2. ONFI [Suspect]
     Active Substance: CLOBAZAM
     Dosage: 10 MG, 2X/DAY
  3. LEVETIRACETAM. [Suspect]
     Active Substance: LEVETIRACETAM
     Indication: SEIZURE
     Dosage: 1000 MG, 2X/DAY
     Dates: start: 201511

REACTIONS (1)
  - Fungal infection [Unknown]
